FAERS Safety Report 5083598-2 (Version None)
Quarter: 2006Q3

REPORT INFORMATION
  Report Type: 
  Country: None (occurrence: None)
  Receive Date: 20060818
  Receipt Date: 20060731
  Transmission Date: 20061208
  Serious: Yes (Other)
  Sender: FDA-Public Use
  Company Number: 13456330

PATIENT
  Age: 44 Year
  Sex: Male

DRUGS (6)
  1. LAMIVUDINE [Suspect]
     Indication: HIV INFECTION
     Dosage: 300MG PER DAY
     Route: 048
     Dates: start: 20060115
  2. ZIAGEN [Suspect]
     Indication: HIV INFECTION
     Dosage: 300MG TWICE PER DAY
     Route: 048
     Dates: start: 20060115
  3. EFAVIRENZ [Suspect]
     Indication: HIV INFECTION
     Dosage: 600MG PER DAY
     Route: 048
     Dates: start: 20060115
  4. ZITHROMAC [Concomitant]
     Dates: start: 20051219
  5. DIFLUCAN [Concomitant]
     Dates: start: 20051219
  6. BACTRIM [Concomitant]
     Dates: start: 20051217

REACTIONS (3)
  - EPIGASTRIC DISCOMFORT [None]
  - HEPATIC FUNCTION ABNORMAL [None]
  - MALAISE [None]
